FAERS Safety Report 9887284 (Version 1)
Quarter: 2014Q1

REPORT INFORMATION
  Report Type: Spontaneous
  Country: US (occurrence: US)
  Receive Date: 20140211
  Receipt Date: 20140211
  Transmission Date: 20141002
  Serious: No
  Sender: FDA-Public Use
  Company Number: US-BIOGENIDEC-2014BI010551

PATIENT
  Sex: Male

DRUGS (7)
  1. TECFIDERA [Suspect]
     Indication: MULTIPLE SCLEROSIS
     Route: 048
     Dates: start: 20130828
  2. FLUOXETINE HCL [Concomitant]
  3. INDOMETHACIN [Concomitant]
  4. METFORMIN HCL [Concomitant]
  5. SIMVASTATIN [Concomitant]
  6. TOVIAZ [Concomitant]
  7. VITAMIN D [Concomitant]

REACTIONS (2)
  - Gait disturbance [Unknown]
  - Back pain [Unknown]
